FAERS Safety Report 25011096 (Version 3)
Quarter: 2025Q2

REPORT INFORMATION
  Report Type: Spontaneous
  Country: SG (occurrence: SG)
  Receive Date: 20250226
  Receipt Date: 20250401
  Transmission Date: 20250717
  Serious: Yes (Disabling, Other)
  Sender: NOVARTIS
  Company Number: SG-002147023-NVSC2025SG030261

PATIENT
  Age: 51 Year
  Sex: Male

DRUGS (5)
  1. ELTROMBOPAG OLAMINE [Suspect]
     Active Substance: ELTROMBOPAG OLAMINE
     Indication: Immune thrombocytopenia
     Route: 065
     Dates: start: 20240417
  2. VITAMIN D NOS [Concomitant]
     Active Substance: CHOLECALCIFEROL\ERGOCALCIFEROL
     Indication: Product used for unknown indication
     Route: 065
  3. CYANOCOBALAMIN [Concomitant]
     Active Substance: CYANOCOBALAMIN
     Indication: Product used for unknown indication
     Route: 065
  4. FOLIC ACID [Concomitant]
     Active Substance: FOLIC ACID
     Indication: Product used for unknown indication
     Route: 065
  5. OMEPRAZOLE [Concomitant]
     Active Substance: OMEPRAZOLE
     Indication: Product used for unknown indication
     Route: 065

REACTIONS (5)
  - Retinal pigment epithelial tear [Recovering/Resolving]
  - Vision blurred [Recovering/Resolving]
  - Detachment of retinal pigment epithelium [Recovering/Resolving]
  - Polypoidal choroidal vasculopathy [Recovering/Resolving]
  - Central serous chorioretinopathy [Recovering/Resolving]

NARRATIVE: CASE EVENT DATE: 20250115
